FAERS Safety Report 8033165-3 (Version None)
Quarter: 2012Q1

REPORT INFORMATION
  Report Type: 
  Country: None (occurrence: None)
  Receive Date: 20120110
  Receipt Date: 20120110
  Transmission Date: 20120608
  Serious: Yes (Other)
  Sender: FDA-Public Use
  Company Number: None

PATIENT
  Age: 25 Year
  Sex: Female
  Weight: 63.502 kg

DRUGS (1)
  1. CYMBALTA [Suspect]
     Indication: FIBROMYALGIA
     Dates: start: 20070501, end: 20121231

REACTIONS (14)
  - FEELING ABNORMAL [None]
  - VOMITING [None]
  - IRRITABILITY [None]
  - PAIN [None]
  - INADEQUATE ANALGESIA [None]
  - DRUG DOSE OMISSION [None]
  - NAUSEA [None]
  - DRUG WITHDRAWAL SYNDROME [None]
  - FATIGUE [None]
  - DISORIENTATION [None]
  - CRYING [None]
  - HEADACHE [None]
  - HYPERSOMNIA [None]
  - DEREALISATION [None]
